FAERS Safety Report 4449181-4 (Version None)
Quarter: 2004Q3

REPORT INFORMATION
  Report Type: 
  Country: None (occurrence: None)
  Receive Date: 20040910
  Receipt Date: 20040830
  Transmission Date: 20050211
  Serious: Yes (Other)
  Sender: FDA-Public Use
  Company Number: K200401343

PATIENT
  Age: 78 Year
  Sex: Male

DRUGS (2)
  1. FLORINEF [Suspect]
     Dosage: 0.1 MG, ORAL
     Route: 048
  2. ^IMMUNEX^ [Concomitant]

REACTIONS (1)
  - INTERSTITIAL LUNG DISEASE [None]
